FAERS Safety Report 4878617-X (Version None)
Quarter: 2006Q1

REPORT INFORMATION
  Report Type: 
  Country: None (occurrence: None)
  Receive Date: 20060110
  Receipt Date: 20051222
  Transmission Date: 20060701
  Serious: Yes (Other)
  Sender: FDA-Public Use
  Company Number: TRP_0675_2005

PATIENT
  Age: 51 Year
  Sex: Male
  Weight: 117.9352 kg

DRUGS (6)
  1. RIBASPHERE [Suspect]
     Indication: HEPATITIS C
     Dosage: DF PO
     Route: 048
     Dates: start: 20051114
  2. PEG-INTRON [Suspect]
     Indication: HEPATITIS C
     Dosage: DF SC
     Route: 058
     Dates: start: 20051114
  3. NEXIUM [Concomitant]
  4. OXYCONTIN [Concomitant]
  5. VASOTEC [Concomitant]
  6. VICODIN [Concomitant]

REACTIONS (7)
  - CONSTIPATION [None]
  - ENTEROCOLITIS INFECTIOUS [None]
  - INJECTION SITE ERYTHEMA [None]
  - PAIN [None]
  - VASCULAR RUPTURE [None]
  - VOMITING [None]
  - WHITE BLOOD CELL COUNT DECREASED [None]
